FAERS Safety Report 9925578 (Version 2)
Quarter: 2014Q1

REPORT INFORMATION
  Report Type: Spontaneous
  Country: US (occurrence: US)
  Receive Date: 20140226
  Receipt Date: 20140226
  Transmission Date: 20141002
  Serious: Yes (Hospitalization)
  Sender: FDA-Public Use
  Company Number: US-GLAXOSMITHKLINE-A0833472A

PATIENT
  Age: 60 Year
  Sex: Male
  Weight: 113.6 kg

DRUGS (6)
  1. AVANDIA [Suspect]
     Indication: DIABETES MELLITUS
     Dosage: 4MG PER DAY
     Route: 048
     Dates: start: 2002, end: 2006
  2. ALTACE [Concomitant]
  3. PREVACID [Concomitant]
  4. AMARYL [Concomitant]
  5. CARDURA [Concomitant]
  6. PROTONIX [Concomitant]

REACTIONS (7)
  - Anaemia [Unknown]
  - Pulmonary hypertension [Unknown]
  - Angina pectoris [Unknown]
  - Renal failure acute [Unknown]
  - Cardiac failure congestive [Unknown]
  - Generalised oedema [Unknown]
  - Cor pulmonale [Unknown]
